FAERS Safety Report 6856482-9 (Version None)
Quarter: 2010Q3

REPORT INFORMATION
  Report Type: 
  Country: None (occurrence: None)
  Receive Date: 20100716
  Receipt Date: 20100716
  Transmission Date: 20110219
  Serious: No
  Sender: FDA-Public Use
  Company Number: None

PATIENT
  Age: 43 Year
  Sex: Male
  Weight: 74.8435 kg

DRUGS (1)
  1. LANTUS [Suspect]

REACTIONS (2)
  - DIABETIC RETINOPATHY [None]
  - GLYCOSYLATED HAEMOGLOBIN INCREASED [None]
